FAERS Safety Report 6866356-5 (Version None)
Quarter: 2010Q3

REPORT INFORMATION
  Report Type: 
  Country: None (occurrence: None)
  Receive Date: 20100722
  Receipt Date: 20100719
  Transmission Date: 20110219
  Serious: Yes (Hospitalization, Other)
  Sender: FDA-Public Use
  Company Number: US-BRISTOL-MYERS SQUIBB COMPANY-15198443

PATIENT
  Age: 89 Year
  Sex: Male
  Weight: 86 kg

DRUGS (1)
  1. COUMADIN [Suspect]
     Indication: CARDIAC DISORDER

REACTIONS (2)
  - CEREBROVASCULAR ACCIDENT [None]
  - DRUG LEVEL BELOW THERAPEUTIC [None]
